FAERS Safety Report 24797607 (Version 1)
Quarter: 2025Q1

REPORT INFORMATION
  Report Type: Spontaneous
  Country: JP (occurrence: JP)
  Receive Date: 20250102
  Receipt Date: 20250102
  Transmission Date: 20250408
  Serious: Yes (Life-Threatening, Hospitalization)
  Sender: NOVITIUM PHARMA
  Company Number: JP-NOVITIUMPHARMA-2024JPNVP03008

PATIENT
  Age: 3 Year
  Sex: Male

DRUGS (14)
  1. PREDNISONE [Suspect]
     Active Substance: PREDNISONE
     Indication: B precursor type acute leukaemia
     Route: 042
  2. METHOTREXATE [Concomitant]
     Active Substance: METHOTREXATE
     Route: 042
  3. METHOTREXATE [Concomitant]
     Active Substance: METHOTREXATE
  4. PREDNISOLONE [Concomitant]
     Active Substance: PREDNISOLONE
  5. CYTARABINE [Concomitant]
     Active Substance: CYTARABINE
  6. BLINATUMOMAB [Concomitant]
     Active Substance: BLINATUMOMAB
  7. BORTEZOMIB [Concomitant]
     Active Substance: BORTEZOMIB
     Route: 042
  8. DOXORUBICIN [Concomitant]
     Active Substance: DOXORUBICIN
     Route: 042
  9. VINCRISTINE [Concomitant]
     Active Substance: VINCRISTINE
     Route: 042
  10. Asparaginase [L-asparaginase] [Concomitant]
     Route: 042
  11. CYCLOPHOSPHAMIDE [Concomitant]
     Active Substance: CYCLOPHOSPHAMIDE
     Route: 042
  12. ETOPOSIDE [Concomitant]
     Active Substance: ETOPOSIDE
     Route: 042
  13. INOTUZUMAB OZOGAMICIN [Concomitant]
     Active Substance: INOTUZUMAB OZOGAMICIN
  14. INOTUZUMAB OZOGAMICIN [Concomitant]
     Active Substance: INOTUZUMAB OZOGAMICIN
     Indication: Trisomy 21

REACTIONS (1)
  - Haematotoxicity [Unknown]
